FAERS Safety Report 9189804 (Version 1)
Quarter: 2013Q1

REPORT INFORMATION
  Report Type: Spontaneous
  Country: BR (occurrence: BR)
  Receive Date: 20130326
  Receipt Date: 20130326
  Transmission Date: 20140127
  Serious: Yes (Death)
  Sender: FDA-Public Use
  Company Number: BR-PFIZER INC-2013097487

PATIENT
  Age: 88 Year
  Sex: Female

DRUGS (1)
  1. LYRICA [Suspect]
     Dosage: 1 CAPSULE (75 MG), 1X/DAY
     Route: 048
     Dates: start: 20121128, end: 20130203

REACTIONS (1)
  - Hepatic cirrhosis [Fatal]
